FAERS Safety Report 10513972 (Version 2)
Quarter: 2015Q3

REPORT INFORMATION
  Report Type: Spontaneous
  Country: DK (occurrence: DK)
  Receive Date: 20141013
  Receipt Date: 20150902
  Transmission Date: 20151125
  Serious: Yes (Other)
  Sender: FDA-Public Use
  Company Number: PHHY2014DK130022

PATIENT
  Age: 90 Year
  Sex: Female

DRUGS (18)
  1. ALENDRONAT BLUEFISH [Concomitant]
     Active Substance: ALENDRONATE SODIUM
     Indication: OSTEOPOROSIS
     Route: 065
  2. CLOPIDOGREL ACTAVIS//CLOPIDOGREL BESYLATE [Concomitant]
     Active Substance: CLOPIDOGREL BESILATE
     Indication: THROMBOSIS PROPHYLAXIS
     Route: 065
  3. MIRTAZAPIN HEXAL [Interacting]
     Active Substance: MIRTAZAPINE
     Indication: DEPRESSION
     Dosage: STYRKE: 45 MG
     Route: 048
     Dates: start: 20131104, end: 20140812
  4. EMPERAL [Concomitant]
     Active Substance: METOCLOPRAMIDE HYDROCHLORIDE
     Indication: NAUSEA
     Route: 065
  5. KALEORID [Concomitant]
     Active Substance: POTASSIUM CHLORIDE
     Indication: MINERAL SUPPLEMENTATION
     Route: 065
  6. TRADOLAN [Interacting]
     Active Substance: TRAMADOL
     Dosage: DOSIS: 50 MG X 1 + PN MAX X 3, STYRKE: 50 MG
     Route: 048
     Dates: start: 20140313
  7. NORSPAN [Concomitant]
     Active Substance: BUPRENORPHINE
     Indication: PAIN
     Route: 065
  8. LANSOPRAZOL KRKA [Concomitant]
     Indication: GASTRIC PH DECREASED
     Route: 065
  9. PINEX                                   /DEN/ [Concomitant]
     Indication: PAIN
     Route: 065
  10. ZOLPIDEM [Concomitant]
     Active Substance: ZOLPIDEM\ZOLPIDEM TARTRATE
     Indication: INSOMNIA
     Route: 065
  11. TRAMADOL RETARD [Suspect]
     Active Substance: TRAMADOL
     Indication: PAIN
     Dosage: 100 MG, UNK
     Route: 048
  12. CENTYL MED KALIUMKLORID [Concomitant]
     Active Substance: BENDROFLUMETHIAZIDE\POTASSIUM CHLORIDE
     Indication: HYPERTENSION
     Route: 065
  13. MOTILIUM ^BYK GULDEN^ [Concomitant]
     Indication: NAUSEA
     Route: 065
  14. TRIMOPAN [Concomitant]
     Indication: PROPHYLAXIS URINARY TRACT INFECTION
     Route: 065
  15. TRADOLAN [Interacting]
     Active Substance: TRAMADOL
     Indication: PAIN
     Dosage: 50 MG, UNK
     Route: 048
     Dates: start: 20140313
  16. TRAMADOL RETARD [Suspect]
     Active Substance: TRAMADOL
     Dosage: 150 MG, UNK
     Route: 048
     Dates: start: 20140313
  17. RAMIPRIL ACTAVIS [Concomitant]
     Active Substance: RAMIPRIL
     Indication: HYPERTENSION
     Route: 065
  18. OXAPAX [Concomitant]
     Active Substance: OXAZEPAM
     Indication: SEDATIVE THERAPY
     Route: 065

REACTIONS (5)
  - Logorrhoea [Recovered/Resolved]
  - Discomfort [Unknown]
  - Serotonin syndrome [Recovered/Resolved]
  - Psychomotor hyperactivity [Recovered/Resolved]
  - Drug interaction [Recovered/Resolved]

NARRATIVE: CASE EVENT DATE: 2014
